FAERS Safety Report 21864769 (Version 2)
Quarter: 2023Q1

REPORT INFORMATION
  Report Type: Report from Study
  Country: US (occurrence: US)
  Receive Date: 20230116
  Receipt Date: 20230119
  Transmission Date: 20230417
  Serious: No
  Sender: FDA-Public Use
  Company Number: US-ABBVIE-4239971

PATIENT
  Sex: Male

DRUGS (2)
  1. HUMIRA [Suspect]
     Active Substance: ADALIMUMAB
     Indication: Crohn^s disease
     Route: 058
     Dates: start: 20220708, end: 20221116
  2. HUMIRA [Suspect]
     Active Substance: ADALIMUMAB
     Dosage: EVENT ONSET DATE- 2022
     Route: 058
     Dates: start: 2022, end: 2022

REACTIONS (1)
  - Therapeutic product effect decreased [Recovering/Resolving]
